FAERS Safety Report 7222758-9 (Version None)
Quarter: 2011Q1

REPORT INFORMATION
  Report Type: 
  Country: None (occurrence: None)
  Receive Date: 20110106
  Receipt Date: 20110106
  Transmission Date: 20110831
  Serious: Yes (Other)
  Sender: FDA-Public Use
  Company Number: None

PATIENT
  Sex: Female
  Weight: 68.0396 kg

DRUGS (1)
  1. SOTRADECOL [Suspect]

REACTIONS (3)
  - SENSORY DISTURBANCE [None]
  - FEELING ABNORMAL [None]
  - BLOOD PRESSURE INCREASED [None]
